FAERS Safety Report 14629179 (Version 1)
Quarter: 2018Q1

REPORT INFORMATION
  Report Type: Spontaneous
  Country: US (occurrence: US)
  Receive Date: 20180312
  Receipt Date: 20180312
  Transmission Date: 20180509
  Serious: Yes (Other)
  Sender: FDA-Public Use
  Company Number: None

PATIENT
  Age: 60 Year
  Sex: Male
  Weight: 112.5 kg

DRUGS (21)
  1. VITAMIN SUPER B COMPLEX [Concomitant]
  2. PATANASE [Concomitant]
     Active Substance: OLOPATADINE HYDROCHLORIDE
  3. LEXAPRO [Concomitant]
     Active Substance: ESCITALOPRAM OXALATE
  4. LOW DOSE ASPRIN [Concomitant]
     Active Substance: ASPIRIN
  5. MIRALEX [Concomitant]
  6. GILENYA [Concomitant]
     Active Substance: FINGOLIMOD HYDROCHLORIDE
  7. AMANTADINE. [Concomitant]
     Active Substance: AMANTADINE HYDROCHLORIDE
  8. BACLOFEN. [Concomitant]
     Active Substance: BACLOFEN
  9. LOSARTIN [Concomitant]
     Active Substance: LOSARTAN
  10. VITAMIN D [Concomitant]
     Active Substance: CHOLECALCIFEROL
  11. MODAFINIL TABLETS, USP 200 MG [Suspect]
     Active Substance: MODAFINIL
     Indication: MULTIPLE SCLEROSIS
     Dosage: ?          QUANTITY:90 TABLET(S);?
     Route: 048
     Dates: start: 20180228, end: 20180305
  12. PROVIGIL [Concomitant]
     Active Substance: MODAFINIL
  13. PAADAY [Concomitant]
  14. NEOPRO [Concomitant]
  15. IRON [Concomitant]
     Active Substance: IRON
  16. LOVAZA [Concomitant]
     Active Substance: OMEGA-3-ACID ETHYL ESTERS
  17. METFORMIN [Concomitant]
     Active Substance: METFORMIN HYDROCHLORIDE
  18. PRILOSE [Concomitant]
  19. HCTZ [Concomitant]
     Active Substance: HYDROCHLOROTHIAZIDE
  20. TRICOR [Concomitant]
     Active Substance: FENOFIBRATE
  21. MODAFINIL TABLETS, USP 200 MG [Suspect]
     Active Substance: MODAFINIL
     Indication: FATIGUE
     Dosage: ?          QUANTITY:90 TABLET(S);?
     Route: 048
     Dates: start: 20180228, end: 20180305

REACTIONS (2)
  - Drug ineffective [None]
  - Product substitution issue [None]

NARRATIVE: CASE EVENT DATE: 20180301
